FAERS Safety Report 12985988 (Version 1)
Quarter: 2016Q4

REPORT INFORMATION
  Report Type: Spontaneous
  Country: CH (occurrence: CH)
  Receive Date: 20161130
  Receipt Date: 20161130
  Transmission Date: 20170207
  Serious: Yes (Death)
  Sender: FDA-Public Use
  Company Number: CH-BAYER-2016-221407

PATIENT
  Age: 83 Year
  Sex: Male

DRUGS (5)
  1. XOFIGO [Suspect]
     Active Substance: RADIUM RA-223 DICHLORIDE
     Dosage: UNK
     Dates: start: 20150217, end: 20150217
  2. XOFIGO [Suspect]
     Active Substance: RADIUM RA-223 DICHLORIDE
     Dosage: 391 NO UNITS WERE PROVIDED
     Dates: start: 20141125, end: 20141125
  3. CIPROXIN [Suspect]
     Active Substance: CIPROFLOXACIN
     Indication: ENTERITIS INFECTIOUS
  4. XOFIGO [Suspect]
     Active Substance: RADIUM RA-223 DICHLORIDE
     Dosage: 354
     Dates: start: 20141223, end: 20141223
  5. XOFIGO [Suspect]
     Active Substance: RADIUM RA-223 DICHLORIDE
     Dosage: 391

REACTIONS (3)
  - Death [Fatal]
  - Anaemia [None]
  - Asthenia [None]

NARRATIVE: CASE EVENT DATE: 2015
